FAERS Safety Report 14313767 (Version 19)
Quarter: 2020Q2

REPORT INFORMATION
  Report Type: Spontaneous
  Country: DE (occurrence: DE)
  Receive Date: 20171221
  Receipt Date: 20200610
  Transmission Date: 20200713
  Serious: Yes (Other)
  Sender: FDA-Public Use
  Company Number: PHHY2017DE189273

PATIENT
  Age: 22 Year
  Sex: Male
  Weight: 61 kg

DRUGS (20)
  1. CLOFAZIMINE [Suspect]
     Active Substance: CLOFAZIMINE
     Indication: PULMONARY TUBERCULOSIS
     Dosage: 100 MG, QD
     Route: 048
     Dates: start: 20170718, end: 20170927
  2. LINEZOLID. [Suspect]
     Active Substance: LINEZOLID
     Indication: PULMONARY TUBERCULOSIS
     Dosage: 600 MG, QD
     Route: 048
     Dates: start: 20170620, end: 20171013
  3. DELTYBA [Suspect]
     Active Substance: DELAMANID
     Indication: PULMONARY TUBERCULOSIS
     Dosage: 2 DF, QD (200MG)
     Route: 048
     Dates: start: 20170712, end: 20170927
  4. TERIZIDONE [Suspect]
     Active Substance: TERIZIDONE
     Indication: PULMONARY TUBERCULOSIS
     Dosage: 750 MG, UNK (2X250+1X250)
     Route: 048
     Dates: start: 20170619, end: 20171018
  5. DEKRISTOL [Concomitant]
     Active Substance: CHOLECALCIFEROL
     Indication: VITAMIN D DEFICIENCY
     Dosage: 20000 IU, QD
     Route: 048
     Dates: start: 20170607, end: 20170615
  6. VITAMIN B6 [Concomitant]
     Active Substance: PYRIDOXINE HYDROCHLORIDE
     Indication: PROPHYLAXIS
     Dosage: 200 MG, QD (100 MG, 2X/DAY)
     Route: 048
     Dates: start: 20170612, end: 20171018
  7. ETHAMBUTOL [Suspect]
     Active Substance: ETHAMBUTOL HYDROCHLORIDE
     Indication: PULMONARY TUBERCULOSIS
     Dosage: UNK
     Route: 065
  8. MOXIFLOXACIN. [Suspect]
     Active Substance: MOXIFLOXACIN
     Dosage: 400 MG, QD
     Route: 042
     Dates: start: 20170928, end: 20171015
  9. ETHAMBUTOL [Suspect]
     Active Substance: ETHAMBUTOL HYDROCHLORIDE
     Dosage: 1000 MG, QD
     Route: 048
     Dates: start: 20171014, end: 20190131
  10. DEKRISTOL [Concomitant]
     Active Substance: CHOLECALCIFEROL
     Indication: CONSTIPATION
     Dosage: 20000 IU, QW
     Route: 048
     Dates: start: 20170619
  11. DEKRISTOL [Concomitant]
     Active Substance: CHOLECALCIFEROL
     Indication: PROPHYLAXIS
  12. VITAMIN B6 [Concomitant]
     Active Substance: PYRIDOXINE HYDROCHLORIDE
     Indication: VITAMIN B6 DEFICIENCY
  13. PROTIONAMIDE [Suspect]
     Active Substance: PROTIONAMIDE
     Indication: PULMONARY TUBERCULOSIS
     Dosage: 750 MG, (2X250+1X250)
     Route: 048
     Dates: start: 20170618, end: 20170723
  14. DELTYBA [Suspect]
     Active Substance: DELAMANID
     Dosage: 2 DF, QD (200MG)
     Route: 048
     Dates: start: 20171012, end: 20171230
  15. TERIZIDONE [Suspect]
     Active Substance: TERIZIDONE
     Dosage: 150 MG, QD
     Route: 048
     Dates: start: 20171019
  16. PYRAZINAMIDE. [Suspect]
     Active Substance: PYRAZINAMIDE
     Indication: PULMONARY TUBERCULOSIS
     Dosage: 1500 MG, QD
     Route: 048
     Dates: start: 20170524, end: 20170726
  17. MOXIFLOXACIN. [Suspect]
     Active Substance: MOXIFLOXACIN
     Indication: PULMONARY TUBERCULOSIS
     Dosage: 400 MG, QD
     Route: 048
     Dates: start: 20170603, end: 20170928
  18. MOXIFLOXACIN. [Suspect]
     Active Substance: MOXIFLOXACIN
     Dosage: 400 MG, QD
     Route: 048
     Dates: start: 20171016, end: 20190131
  19. ETHAMBUTOL [Suspect]
     Active Substance: ETHAMBUTOL HYDROCHLORIDE
     Dosage: 500 MG, QD
     Route: 048
     Dates: start: 20170706, end: 20170710
  20. CLOFAZIMINE [Suspect]
     Active Substance: CLOFAZIMINE
     Dosage: 100 MG, QD
     Route: 048
     Dates: start: 20171012, end: 20190131

REACTIONS (2)
  - Helicobacter gastritis [Recovered/Resolved]
  - Bicytopenia [Recovered/Resolved with Sequelae]

NARRATIVE: CASE EVENT DATE: 20170916
